FAERS Safety Report 22646766 (Version 1)
Quarter: 2023Q2

REPORT INFORMATION
  Report Type: Spontaneous
  Country: ES (occurrence: ES)
  Receive Date: 20230627
  Receipt Date: 20230627
  Transmission Date: 20230721
  Serious: Yes (Hospitalization, Other)
  Sender: FDA-Public Use
  Company Number: ES-CIPLA (EU) LIMITED-2023ES03110

PATIENT
  Age: 10 Year
  Sex: Male

DRUGS (2)
  1. BORTEZOMIB [Suspect]
     Active Substance: BORTEZOMIB
     Indication: Nervous system disorder
     Dosage: UNK
     Route: 065
  2. ACYCLOVIR [Concomitant]
     Active Substance: ACYCLOVIR
     Indication: Herpes simplex
     Dosage: UNK
     Route: 065

REACTIONS (6)
  - Septic shock [Unknown]
  - Pancytopenia [Unknown]
  - Neutropenia [Unknown]
  - Headache [Not Recovered/Not Resolved]
  - Procalcitonin increased [Unknown]
  - C-reactive protein increased [Unknown]
